FAERS Safety Report 5151137-3 (Version None)
Quarter: 2006Q4

REPORT INFORMATION
  Report Type: 
  Country: None (occurrence: None)
  Receive Date: 20061114
  Receipt Date: 20061114
  Transmission Date: 20070319
  Serious: No
  Sender: FDA-Public Use
  Company Number: None

PATIENT
  Age: 45 Year
  Sex: Female
  Weight: 95.2554 kg

DRUGS (1)
  1. EQUATE EXTRA STRENGTH PAIN 500 MG PERRIGO [Suspect]
     Indication: HEADACHE
     Dosage: 2 CAPLETS EVERY 6 HRS.
     Dates: start: 20061101, end: 20061106

REACTIONS (3)
  - HAEMOPTYSIS [None]
  - PHARMACEUTICAL PRODUCT COMPLAINT [None]
  - UPPER RESPIRATORY TRACT INFECTION [None]
